FAERS Safety Report 4576612-1 (Version None)
Quarter: 2005Q1

REPORT INFORMATION
  Report Type: 
  Country: None (occurrence: None)
  Receive Date: 20050210
  Receipt Date: 20041216
  Transmission Date: 20050727
  Serious: Yes (Other)
  Sender: FDA-Public Use
  Company Number: GB-JNJFOC-20050201499

PATIENT
  Sex: Female
  Weight: 70 kg

DRUGS (8)
  1. REMICADE [Suspect]
     Indication: RHEUMATOID ARTHRITIS
     Route: 042
  2. VOLTAROL [Concomitant]
  3. THYROXINE [Concomitant]
  4. TYLEX [Concomitant]
  5. TYLEX [Concomitant]
  6. TYLEX [Concomitant]
  7. METHOTREXATE [Concomitant]
  8. FERROUS SULFATE TAB [Concomitant]

REACTIONS (2)
  - ARTHRALGIA [None]
  - ATRIAL FIBRILLATION [None]
